FAERS Safety Report 5039503-8 (Version None)
Quarter: 2006Q2

REPORT INFORMATION
  Report Type: 
  Country: None (occurrence: None)
  Receive Date: 20060626
  Receipt Date: 20060613
  Transmission Date: 20061013
  Serious: Yes (Hospitalization)
  Sender: FDA-Public Use
  Company Number: 163-20785-06050442

PATIENT
  Age: 2 Year
  Sex: Female

DRUGS (9)
  1. THALOMID [Suspect]
     Indication: NEUROFIBROMATOSIS
     Dosage: SEE IMAGE, ORAL
     Route: 048
     Dates: start: 20050101, end: 20060301
  2. THALOMID [Suspect]
     Indication: OPTIC TRACT GLIOMA
     Dosage: SEE IMAGE, ORAL
     Route: 048
     Dates: start: 20050101, end: 20060301
  3. THALOMID [Suspect]
     Indication: NEUROFIBROMATOSIS
     Dosage: SEE IMAGE, ORAL
     Route: 048
     Dates: start: 20060312, end: 20060401
  4. THALOMID [Suspect]
     Indication: OPTIC TRACT GLIOMA
     Dosage: SEE IMAGE, ORAL
     Route: 048
     Dates: start: 20060312, end: 20060401
  5. THALOMID [Suspect]
     Indication: NEUROFIBROMATOSIS
     Dosage: SEE IMAGE, ORAL
     Route: 048
     Dates: start: 20060401
  6. THALOMID [Suspect]
     Indication: OPTIC TRACT GLIOMA
     Dosage: SEE IMAGE, ORAL
     Route: 048
     Dates: start: 20060401
  7. BACTRIM [Suspect]
     Dates: end: 20060401
  8. MULTIVITAMIN [Concomitant]
  9. CARBOPLATIN [Concomitant]

REACTIONS (5)
  - HYPOTENSION [None]
  - NEUTROPENIA [None]
  - OTITIS MEDIA [None]
  - PYREXIA [None]
  - RASH [None]
